FAERS Safety Report 7808067-5 (Version None)
Quarter: 2011Q4

REPORT INFORMATION
  Report Type: 
  Country: None (occurrence: None)
  Receive Date: 20111011
  Receipt Date: 20111004
  Transmission Date: 20120403
  Serious: Yes (Other)
  Sender: FDA-Public Use
  Company Number: IT-BAXTER-2011BH031373

PATIENT
  Age: 40 Year
  Sex: Female

DRUGS (4)
  1. CYCLOPHOSPHAMIDE [Suspect]
     Indication: OFF LABEL USE
     Route: 042
     Dates: start: 20110624, end: 20110717
  2. CYCLOPHOSPHAMIDE [Suspect]
     Indication: THYMOMA
     Route: 042
     Dates: start: 20110624, end: 20110717
  3. CISPLATIN [Suspect]
     Indication: THYMOMA
     Route: 042
     Dates: start: 20110624, end: 20110717
  4. EPIRUBICIN HYDROCHLORIDE [Suspect]
     Indication: THYMOMA
     Route: 042
     Dates: start: 20110624, end: 20110717

REACTIONS (4)
  - NAUSEA [None]
  - NEUTROPENIA [None]
  - HYPERTRANSAMINASAEMIA [None]
  - ALOPECIA [None]
